FAERS Safety Report 25586271 (Version 1)
Quarter: 2025Q3

REPORT INFORMATION
  Report Type: Spontaneous
  Country: US (occurrence: None)
  Receive Date: 20250719
  Receipt Date: 20250719
  Transmission Date: 20251020
  Serious: No
  Sender: FDA-CTU
  Company Number: None

PATIENT

DRUGS (1)
  1. CETIRIZINE HCL [Suspect]
     Active Substance: CETIRIZINE HYDROCHLORIDE
     Indication: Seasonal allergy
     Dosage: 1 TBLET AT BEDTIME ORAL
     Route: 048
     Dates: start: 20220301, end: 20250712

REACTIONS (2)
  - Pruritus [None]
  - Rash papular [None]

NARRATIVE: CASE EVENT DATE: 20250719
